FAERS Safety Report 5295355-2 (Version None)
Quarter: 2007Q2

REPORT INFORMATION
  Report Type: 
  Country: None (occurrence: None)
  Receive Date: 20070412
  Receipt Date: 20070404
  Transmission Date: 20071010
  Serious: Yes (Life-Threatening, Hospitalization)
  Sender: FDA-Public Use
  Company Number: JP-PFIZER INC-2007010491

PATIENT
  Sex: Male
  Weight: 43.6 kg

DRUGS (8)
  1. CARDENALIN [Suspect]
     Indication: HYPERTENSION
     Route: 048
     Dates: start: 20050222, end: 20070204
  2. LIPITOR [Suspect]
     Indication: HYPERLIPIDAEMIA
     Route: 048
     Dates: start: 20041104, end: 20070205
  3. CAPTOPRIL [Suspect]
     Indication: HYPERTENSION
     Route: 048
     Dates: start: 20060915, end: 20070205
  4. EUGLUCON [Suspect]
  5. HARNAL [Concomitant]
     Route: 048
  6. LASIX [Concomitant]
     Route: 048
  7. NIFE - SLOW RELEASE [Concomitant]
     Route: 048
     Dates: start: 20060102
  8. HALCION [Concomitant]
     Route: 048

REACTIONS (2)
  - DEPRESSED LEVEL OF CONSCIOUSNESS [None]
  - HYPOGLYCAEMIA [None]
